FAERS Safety Report 14953292 (Version 2)
Quarter: 2018Q3

REPORT INFORMATION
  Report Type: Report from Study
  Country: None (occurrence: US)
  Receive Date: 20180530
  Receipt Date: 20180801
  Transmission Date: 20181010
  Serious: Yes (Other)
  Sender: FDA-Public Use
  Company Number: US-ABBVIE-17K-163-2033218-00

PATIENT
  Sex: Female

DRUGS (1)
  1. HUMIRA [Suspect]
     Active Substance: ADALIMUMAB
     Indication: RHEUMATOID ARTHRITIS
     Route: 058

REACTIONS (12)
  - Musculoskeletal stiffness [Unknown]
  - Arthralgia [Unknown]
  - Musculoskeletal pain [Unknown]
  - Skin laxity [Unknown]
  - Staphylococcal infection [Unknown]
  - Rheumatoid arthritis [Not Recovered/Not Resolved]
  - Head injury [Unknown]
  - Swelling [Unknown]
  - Gait inability [Unknown]
  - Peripheral swelling [Unknown]
  - Vitamin D decreased [Unknown]
  - Sensitivity to weather change [Unknown]
